FAERS Safety Report 24285734 (Version 2)
Quarter: 2024Q3

REPORT INFORMATION
  Report Type: Spontaneous
  Country: JP (occurrence: JP)
  Receive Date: 20240905
  Receipt Date: 20240918
  Transmission Date: 20241017
  Serious: Yes (Death)
  Sender: SANOFI AVENTIS
  Company Number: JP-SA-2024SA256799

PATIENT
  Age: 74 Year
  Sex: Male

DRUGS (1)
  1. REZUROCK [Suspect]
     Active Substance: BELUMOSUDIL
     Indication: Chronic graft versus host disease
     Dosage: 200 MG, BID
     Route: 048
     Dates: start: 20240619, end: 20240817

REACTIONS (2)
  - Chronic graft versus host disease [Fatal]
  - Disease progression [Fatal]
